FAERS Safety Report 15363123 (Version 5)
Quarter: 2019Q3

REPORT INFORMATION
  Report Type: Report from Study
  Country: BE (occurrence: BE)
  Receive Date: 20180907
  Receipt Date: 20190903
  Transmission Date: 20191004
  Serious: Yes (Hospitalization, Other)
  Sender: FDA-Public Use
  Company Number: BE-INCYTE CORPORATION-2018IN003277

PATIENT

DRUGS (28)
  1. JAKAVI [Suspect]
     Active Substance: RUXOLITINIB
     Dosage: 20 OT, UNK
     Route: 048
     Dates: start: 20180321, end: 20180417
  2. NEXIAM [Concomitant]
     Active Substance: ESOMEPRAZOLE
     Indication: PROPHYLAXIS
     Dosage: 40 MG, BID
     Route: 065
     Dates: start: 20160421
  3. AUGENTROPFEN [Concomitant]
     Indication: LOCKED-IN SYNDROME
     Dosage: 1 OT, UNK
     Route: 065
     Dates: start: 20100616
  4. LIORESAL [Concomitant]
     Active Substance: BACLOFEN
     Indication: LOCKED-IN SYNDROME
     Dosage: 15 OT, UNK
     Route: 065
     Dates: start: 19990319
  5. YMEA [Concomitant]
     Indication: MENOPAUSAL SYMPTOMS
     Dosage: 1 OT, UNK
     Route: 065
     Dates: start: 20110405
  6. DULCOLAX NOS [Concomitant]
     Active Substance: BISACODYL OR DOCUSATE SODIUM
     Indication: CONSTIPATION
     Dosage: 10 OT, UNK
     Route: 065
  7. JAKAVI [Suspect]
     Active Substance: RUXOLITINIB
     Dosage: 10 OT, UNK
     Route: 065
     Dates: start: 20180418, end: 20181219
  8. DUPHALAC [Concomitant]
     Active Substance: LACTULOSE
     Indication: CONSTIPATION
     Dosage: 15 OT, UNK
     Route: 065
     Dates: start: 1999
  9. ASAFLOW [Concomitant]
     Active Substance: ASPIRIN
     Indication: PROPHYLAXIS
     Dosage: 80 OT, UNK
     Route: 065
     Dates: start: 2011
  10. ZYRTEC [Concomitant]
     Active Substance: CETIRIZINE HYDROCHLORIDE
     Indication: PRURITUS
     Dosage: 10 OT, UNK
     Route: 065
     Dates: start: 20170322, end: 20180124
  11. INDERAL [Concomitant]
     Active Substance: PROPRANOLOL HYDROCHLORIDE
     Indication: BLOOD PRESSURE INCREASED
     Dosage: 20 OT, UNK
     Route: 065
     Dates: start: 1999
  12. DIFLUCAN [Concomitant]
     Active Substance: FLUCONAZOLE
     Indication: CANDIDA INFECTION
     Dosage: 50 OT, UNK
     Route: 065
     Dates: start: 20160608, end: 20160618
  13. ATARAX [Concomitant]
     Active Substance: HYDROXYZINE HYDROCHLORIDE
     Indication: PRURITUS
     Dosage: 25 OT, UNK
     Route: 065
     Dates: start: 20170322
  14. DULCOLAX NOS [Concomitant]
     Active Substance: BISACODYL OR DOCUSATE SODIUM
     Dosage: 5 OT, UNK
     Route: 065
     Dates: start: 1999
  15. VESICARE [Concomitant]
     Active Substance: SOLIFENACIN SUCCINATE
     Indication: URINARY INCONTINENCE
     Dosage: 10 OT, UNK
     Route: 065
     Dates: start: 20101005
  16. REDOMEX [Concomitant]
     Active Substance: AMITRIPTYLINE HYDROCHLORIDE
     Indication: NEURALGIA
     Dosage: 25 OT, UNK
     Route: 065
     Dates: start: 19961106
  17. JAKAVI [Suspect]
     Active Substance: RUXOLITINIB
     Indication: POLYCYTHAEMIA VERA
     Dosage: 15 MG, BID
     Route: 048
     Dates: start: 20171129
  18. JAKAVI [Suspect]
     Active Substance: RUXOLITINIB
     Dosage: 20 OT, UNK
     Route: 048
     Dates: start: 201712
  19. JAKAVI [Suspect]
     Active Substance: RUXOLITINIB
     Dosage: 30 OT, UNK
     Route: 048
     Dates: start: 201712, end: 20180320
  20. JAKAVI [Suspect]
     Active Substance: RUXOLITINIB
     Dosage: 20 OT, UNK
     Route: 065
     Dates: start: 20181220
  21. MIDAZOLAM [Concomitant]
     Active Substance: MIDAZOLAM HYDROCHLORIDE
     Indication: ENDOSCOPY UPPER GASTROINTESTINAL TRACT
     Dosage: 3 OT, UNK
     Route: 065
     Dates: start: 20180307, end: 20180308
  22. LYSOMUCIL [Concomitant]
     Active Substance: ACETYLCYSTEINE
     Indication: LOCKED-IN SYNDROME
     Dosage: 200 OT, UNK
     Route: 065
     Dates: start: 20031114
  23. CELEA [Concomitant]
     Indication: HORMONAL CONTRACEPTION
     Dosage: 75 OT, UNK
     Route: 065
     Dates: start: 20160420
  24. DURATEARS [Concomitant]
     Active Substance: MINERAL OIL EMULSION\PETROLATUM
     Indication: LOCKED-IN SYNDROME
     Dosage: 1 OT, UNK
     Route: 065
     Dates: start: 20100616
  25. HYDREA [Concomitant]
     Active Substance: HYDROXYUREA
     Dosage: 750 OT, UNK
     Route: 065
     Dates: start: 20161006, end: 20171129
  26. ESOMEPRAZOL [Concomitant]
     Active Substance: ESOMEPRAZOLE
     Indication: PROPHYLAXIS
     Dosage: 40 OT, UNK
     Route: 065
     Dates: start: 20160421
  27. FRESUBIN ORIGINAL [Concomitant]
     Indication: LOCKED-IN SYNDROME
     Dosage: 2000 OT, UNK
     Route: 065
     Dates: start: 20130523
  28. HYDREA [Concomitant]
     Active Substance: HYDROXYUREA
     Indication: POLYCYTHAEMIA VERA
     Dosage: 500 OT, UNK
     Route: 065
     Dates: start: 20120117, end: 20161005

REACTIONS (13)
  - Anal haemorrhage [Recovered/Resolved]
  - Anaemia [Recovered/Resolved]
  - Epistaxis [Recovered/Resolved]
  - Facet joint syndrome [Not Recovered/Not Resolved]
  - Anal haemorrhage [Recovered/Resolved]
  - Anaemia [Recovered/Resolved]
  - Anxiety [Not Recovered/Not Resolved]
  - Oesophageal candidiasis [Recovered/Resolved]
  - Fatigue [Recovered/Resolved]
  - Oesophageal ulcer [Recovered/Resolved]
  - Weight decreased [Not Recovered/Not Resolved]
  - Anaemia [Recovered/Resolved]
  - Nasopharyngitis [Recovered/Resolved]

NARRATIVE: CASE EVENT DATE: 201712
